FAERS Safety Report 9218852 (Version 1)
Quarter: 2013Q2

REPORT INFORMATION
  Report Type: Spontaneous
  Country: US (occurrence: None)
  Receive Date: 20130405
  Receipt Date: 20130405
  Transmission Date: 20140414
  Serious: Yes (Disabling)
  Sender: FDA-Public Use
  Company Number: None

PATIENT
  Age: 69 Year
  Sex: Female
  Weight: 99.79 kg

DRUGS (1)
  1. XARELTO 20 MG [Suspect]
     Indication: DEEP VEIN THROMBOSIS
     Dates: start: 20121220, end: 20130329

REACTIONS (2)
  - Cough [None]
  - Dyspnoea [None]
